FAERS Safety Report 18396274 (Version 14)
Quarter: 2021Q3

REPORT INFORMATION
  Report Type: Other
  Country: CA (occurrence: CA)
  Receive Date: 20201019
  Receipt Date: 20210827
  Transmission Date: 20211014
  Serious: Yes (Hospitalization, Other)
  Sender: FDA-Public Use
  Company Number: CA-ROCHE-1182274

PATIENT
  Age: 82 Year
  Sex: Female
  Weight: 64.6 kg

DRUGS (23)
  1. TYLENOL [Concomitant]
     Active Substance: ACETAMINOPHEN
     Indication: ARTHRITIS
  2. BUDESONIDE. [Concomitant]
     Active Substance: BUDESONIDE
     Indication: PRODUCT USED FOR UNKNOWN INDICATION
  3. CALCIUM [Concomitant]
     Active Substance: CALCIUM
     Indication: PRODUCT USED FOR UNKNOWN INDICATION
  4. RANITIDINE. [Concomitant]
     Active Substance: RANITIDINE
     Indication: PRODUCT USED FOR UNKNOWN INDICATION
  5. OXYGEN. [Concomitant]
     Active Substance: OXYGEN
     Indication: PRODUCT USED FOR UNKNOWN INDICATION
  6. SENOKOT [Concomitant]
     Active Substance: SENNOSIDES
     Indication: PRODUCT USED FOR UNKNOWN INDICATION
     Dosage: ONGOING
  7. RISEDRONATE [Concomitant]
     Active Substance: RISEDRONATE SODIUM
     Indication: PRODUCT USED FOR UNKNOWN INDICATION
  8. ADVAIR HFA [Concomitant]
     Active Substance: FLUTICASONE PROPIONATE\SALMETEROL XINAFOATE
     Indication: PRODUCT USED FOR UNKNOWN INDICATION
  9. SYNTHROID [Concomitant]
     Active Substance: LEVOTHYROXINE SODIUM
     Indication: PRODUCT USED FOR UNKNOWN INDICATION
  10. AZATHIOPRINE. [Concomitant]
     Active Substance: AZATHIOPRINE
     Indication: PRODUCT USED FOR UNKNOWN INDICATION
  11. TYLENOL ARTHRITIS PAIN [Concomitant]
     Active Substance: ACETAMINOPHEN
     Indication: PRODUCT USED FOR UNKNOWN INDICATION
  12. ACTEMRA [Suspect]
     Active Substance: TOCILIZUMAB
     Route: 042
     Dates: start: 20130215, end: 20141003
  13. ACTEMRA [Suspect]
     Active Substance: TOCILIZUMAB
     Route: 042
     Dates: start: 20181022
  14. SPIRIVA [Concomitant]
     Active Substance: TIOTROPIUM BROMIDE MONOHYDRATE
     Indication: PRODUCT USED FOR UNKNOWN INDICATION
  15. LASIX [Concomitant]
     Active Substance: FUROSEMIDE
     Indication: PRODUCT USED FOR UNKNOWN INDICATION
     Route: 042
  16. METOPROLOL. [Concomitant]
     Active Substance: METOPROLOL
     Indication: PRODUCT USED FOR UNKNOWN INDICATION
  17. LASIX [Concomitant]
     Active Substance: FUROSEMIDE
  18. ACTEMRA [Suspect]
     Active Substance: TOCILIZUMAB
     Route: 042
     Dates: start: 20141031, end: 20150925
  19. ACTEMRA [Suspect]
     Active Substance: TOCILIZUMAB
     Route: 042
     Dates: start: 20130221
  20. VENOFER [Concomitant]
     Active Substance: IRON SUCROSE
     Indication: PRODUCT USED FOR UNKNOWN INDICATION
     Dosage: ONGOING
  21. ACTEMRA [Suspect]
     Active Substance: TOCILIZUMAB
     Indication: RHEUMATOID ARTHRITIS
     Route: 042
     Dates: start: 20121221, end: 20130118
  22. ROSUVASTATIN. [Concomitant]
     Active Substance: ROSUVASTATIN
     Indication: PRODUCT USED FOR UNKNOWN INDICATION
  23. ACTEMRA [Suspect]
     Active Substance: TOCILIZUMAB
     Route: 042
     Dates: start: 20151123, end: 20180925

REACTIONS (41)
  - Dyspnoea [Not Recovered/Not Resolved]
  - Rheumatoid arthritis [Not Recovered/Not Resolved]
  - Weight decreased [Unknown]
  - Blood pressure systolic increased [Unknown]
  - Gastrointestinal haemorrhage [Recovered/Resolved]
  - Contusion [Not Recovered/Not Resolved]
  - Skin discolouration [Unknown]
  - Asthenia [Unknown]
  - Haemoglobin decreased [Unknown]
  - Disability assessment scale score increased [Unknown]
  - Nasopharyngitis [Unknown]
  - Poor venous access [Unknown]
  - Dizziness [Unknown]
  - Off label use [Unknown]
  - Peripheral swelling [Unknown]
  - Infusion related reaction [Unknown]
  - Hypertension [Not Recovered/Not Resolved]
  - Cardiac disorder [Unknown]
  - Blood iron decreased [Unknown]
  - Urinary tract infection [Recovered/Resolved]
  - Chest pain [Unknown]
  - Heart rate decreased [Unknown]
  - Blood pressure diastolic decreased [Unknown]
  - Pulmonary oedema [Not Recovered/Not Resolved]
  - Heart rate decreased [Unknown]
  - Haemorrhage [Recovered/Resolved]
  - Blood pressure fluctuation [Unknown]
  - Oxygen saturation decreased [Unknown]
  - Nasopharyngitis [Recovered/Resolved]
  - Productive cough [Unknown]
  - Oxygen saturation decreased [Recovered/Resolved]
  - Lower respiratory tract infection [Unknown]
  - Infection [Unknown]
  - Pharyngitis [Recovered/Resolved]
  - Blood pressure diastolic decreased [Unknown]
  - Insomnia [Unknown]
  - Pneumonia [Recovered/Resolved]
  - Oedema peripheral [Recovered/Resolved]
  - Chronic obstructive pulmonary disease [Unknown]
  - Weight increased [Unknown]
  - Blood pressure diastolic abnormal [Unknown]

NARRATIVE: CASE EVENT DATE: 2013
